FAERS Safety Report 4352716-3 (Version None)
Quarter: 2004Q2

REPORT INFORMATION
  Report Type: 
  Country: None (occurrence: None)
  Receive Date: 20040504
  Receipt Date: 20040426
  Transmission Date: 20050107
  Serious: Yes (Hospitalization, Other)
  Sender: FDA-Public Use
  Company Number: CA-GLAXOSMITHKLINE-A0508577A

PATIENT
  Age: 37 Year
  Sex: Male

DRUGS (6)
  1. PAXIL [Suspect]
     Indication: DEPRESSION
     Route: 048
     Dates: start: 20010101
  2. SERTRALINE [Suspect]
     Indication: DRUG USE FOR UNKNOWN INDICATION
  3. NOVO-BROMAZEPAM [Suspect]
     Indication: DRUG USE FOR UNKNOWN INDICATION
  4. PONDOCILLIN [Suspect]
     Indication: DRUG USE FOR UNKNOWN INDICATION
  5. SOMNOL TAB [Suspect]
     Indication: DRUG USE FOR UNKNOWN INDICATION
  6. TEMAZEPAM [Suspect]
     Indication: DRUG USE FOR UNKNOWN INDICATION

REACTIONS (2)
  - COMA [None]
  - MEDICATION ERROR [None]
